FAERS Safety Report 9517002 (Version 1)
Quarter: 2013Q1

REPORT INFORMATION
  Report Type: Spontaneous
  Country: US (occurrence: None)
  Receive Date: 20130305
  Receipt Date: 20130305
  Transmission Date: 20140127
  Serious: Yes (Hospitalization, Other)
  Sender: FDA-Public Use
  Company Number: 163-21880-12081160

PATIENT
  Age: 57 Year
  Sex: Male

DRUGS (24)
  1. REVLIMID [Suspect]
     Indication: PLASMA CELL MYELOMA
     Dates: start: 201206
  2. SOLUMEDROL (METHYLPREDNISOLONE SODIUM SUCCINATE) [Concomitant]
  3. ASPIRIN (ACETYLSALICYLIC ACID) [Concomitant]
  4. DUONEB (COMBIVENT) [Concomitant]
  5. LACTOBACILLUS (LACTOBACILLUS ACIDOPHILUS) [Concomitant]
  6. METHYLPREDNISOLONE [Concomitant]
  7. PANTOPRAZOLE [Concomitant]
  8. LEVOTHYROXINE [Concomitant]
  9. LASIX (FUROSEMIDE) [Concomitant]
  10. SENNA [Concomitant]
  11. PHENERGAN (PROMETHAZINE HYDROCHLORIDE) [Concomitant]
  12. ZOFRAN (ONDANSETRON HYDROCHLORIDE) [Concomitant]
  13. MORPHINE [Concomitant]
  14. OXYCODONE [Concomitant]
  15. PROTONIX [Concomitant]
  16. LORAZEPAM [Concomitant]
  17. TYLENOL (PARACETAMOL) [Concomitant]
  18. FRAGMIN (HEPARIN-FRACTION, SODIUM SALT) [Concomitant]
  19. GUAIFENESIN [Concomitant]
  20. POTASSIUM [Concomitant]
  21. ALBUTEROL (SALBUTAMOL) [Concomitant]
  22. MS CONTIN (MORPHINE SULFAET) [Concomitant]
  23. COUMADIN (WARFARIN SODIUM) [Concomitant]
  24. COLACE (DOCUSATE SODIUM) [Concomitant]

REACTIONS (4)
  - Bacterial sepsis [None]
  - Cellulitis [None]
  - Infection [None]
  - Chronic obstructive pulmonary disease [None]
